FAERS Safety Report 10144446 (Version 1)
Quarter: 2014Q2

REPORT INFORMATION
  Report Type: Report from Study
  Country: US (occurrence: US)
  Receive Date: 20140430
  Receipt Date: 20140430
  Transmission Date: 20141212
  Serious: Yes (Hospitalization, Other)
  Sender: FDA-Public Use
  Company Number: US-ABBVIE-14P-163-1228335-00

PATIENT
  Age: 18 Year
  Sex: Male

DRUGS (2)
  1. HUMIRA [Suspect]
     Indication: COLITIS ULCERATIVE
     Dosage: DAY 1
     Dates: start: 20140331, end: 20140331
  2. HUMIRA [Suspect]
     Dosage: DAY 15
     Dates: start: 20140414

REACTIONS (9)
  - Loss of consciousness [Recovering/Resolving]
  - Colitis ulcerative [Recovering/Resolving]
  - Injection site pain [Recovering/Resolving]
  - Unresponsive to stimuli [Recovering/Resolving]
  - Haematochezia [Recovering/Resolving]
  - Weight decreased [Recovering/Resolving]
  - Blood test abnormal [Recovering/Resolving]
  - Ulcer [Recovering/Resolving]
  - Adverse event [Unknown]
